FAERS Safety Report 16668292 (Version 1)
Quarter: 2019Q3

REPORT INFORMATION
  Report Type: Report from Study
  Country: DE (occurrence: DE)
  Receive Date: 20190805
  Receipt Date: 20190805
  Transmission Date: 20191004
  Serious: Yes (Hospitalization)
  Sender: FDA-Public Use
  Company Number: DE-PFIZER INC-2019325474

PATIENT
  Age: 29 Year
  Sex: Female
  Weight: 92 kg

DRUGS (37)
  1. TAFINLAR [Suspect]
     Active Substance: DABRAFENIB MESYLATE
     Dosage: 150 MG, 2X/DAY
     Route: 048
     Dates: start: 20160908, end: 20161007
  2. DECORTIN H [Concomitant]
     Active Substance: PREDNISOLONE
     Dosage: 80 MG, 1X/DAY
     Route: 048
     Dates: start: 20170614, end: 20170620
  3. DECORTIN H [Concomitant]
     Active Substance: PREDNISOLONE
     Dosage: 40 MG, 1X/DAY
     Route: 048
     Dates: start: 20170813, end: 20170820
  4. NOVALGIN (METAMIZOLE SODIUM) [Concomitant]
     Active Substance: METAMIZOLE SODIUM
     Indication: ABDOMINAL PAIN UPPER
     Dosage: 500 MG, 1X/DAY
     Route: 048
     Dates: start: 20160908
  5. TAFINLAR [Suspect]
     Active Substance: DABRAFENIB MESYLATE
     Dosage: 75 MG, 2X/DAY
     Route: 048
     Dates: start: 20161031, end: 20161107
  6. IPILIMUMAB [Concomitant]
     Active Substance: IPILIMUMAB
     Indication: MALIGNANT MELANOMA
     Dosage: 279 MG, EVERY 3 WEEKS
     Route: 042
     Dates: start: 20170421, end: 20170518
  7. TAFINLAR [Suspect]
     Active Substance: DABRAFENIB MESYLATE
     Dosage: 150 MG, 2X/DAY
     Route: 048
     Dates: start: 20161117, end: 20170413
  8. TRAMETINIB [Suspect]
     Active Substance: TRAMETINIB
     Indication: MALIGNANT MELANOMA
     Dosage: 2 MG, 1X/DAY
     Route: 048
     Dates: start: 20160908, end: 20161007
  9. DECORTIN H [Concomitant]
     Active Substance: PREDNISOLONE
     Dosage: 55 MG, 1X/DAY
     Route: 048
     Dates: start: 20170720, end: 20170805
  10. IBUPROFEN. [Suspect]
     Active Substance: IBUPROFEN
     Indication: INFLUENZA LIKE ILLNESS
     Dosage: 400 MG, DAILY
     Route: 065
     Dates: start: 2013
  11. TAFINLAR [Suspect]
     Active Substance: DABRAFENIB MESYLATE
     Indication: MALIGNANT MELANOMA
     Dosage: 150 MG, 2X/DAY
     Route: 048
     Dates: start: 20170905, end: 20170923
  12. TRAMETINIB [Suspect]
     Active Substance: TRAMETINIB
     Dosage: 2 MG, 1X/DAY
     Route: 048
     Dates: start: 20161117, end: 20170413
  13. ZOFRAN [Concomitant]
     Active Substance: ONDANSETRON HYDROCHLORIDE
     Dosage: 8 MG, 2X/DAY
     Route: 048
     Dates: start: 20171012, end: 20171017
  14. DECORTIN H [Concomitant]
     Active Substance: PREDNISOLONE
     Dosage: 70 MG, 1X/DAY
     Route: 048
     Dates: start: 20170621, end: 20170706
  15. DECORTIN H [Concomitant]
     Active Substance: PREDNISOLONE
     Dosage: 60 MG, 1X/DAY
     Route: 048
     Dates: start: 20170720, end: 20170720
  16. DECORTIN H [Concomitant]
     Active Substance: PREDNISOLONE
     Dosage: 20 MG, 1X/DAY
     Route: 048
     Dates: start: 20170828, end: 20170910
  17. DECORTIN H [Concomitant]
     Active Substance: PREDNISOLONE
     Dosage: 10 MG, 1X/DAY
     Dates: start: 20170911, end: 20170919
  18. NOVALGIN (METAMIZOLE SODIUM) [Concomitant]
     Active Substance: METAMIZOLE SODIUM
     Indication: ABDOMINAL PAIN
     Dosage: 500 MG, 3X/DAY
     Route: 048
     Dates: start: 20170421
  19. TARGIN [Concomitant]
     Active Substance: NALOXONE HYDROCHLORIDE\OXYCODONE HYDROCHLORIDE
     Dosage: 10 MG, 2X/DAY
     Route: 048
     Dates: start: 20170519, end: 20170616
  20. IMODIUM [Concomitant]
     Active Substance: LOPERAMIDE HYDROCHLORIDE
     Dosage: UNK UNK, AS NEEDED
     Route: 048
     Dates: start: 20170529
  21. TAFINLAR [Suspect]
     Active Substance: DABRAFENIB MESYLATE
     Dosage: 75 MG, 2X/DAY
     Route: 048
     Dates: start: 20161108, end: 20161116
  22. TRAMETINIB [Suspect]
     Active Substance: TRAMETINIB
     Dosage: 1 MG, 1X/DAY
     Route: 048
     Dates: start: 20161108, end: 20161116
  23. DECORTIN H [Concomitant]
     Active Substance: PREDNISOLONE
     Dosage: 45 MG, 1X/DAY
     Route: 048
     Dates: start: 20170806, end: 20170812
  24. VEMURAFENIB. [Concomitant]
     Active Substance: VEMURAFENIB
     Indication: MALIGNANT MELANOMA
     Dosage: 960 MG, 2X/DAY
     Route: 048
     Dates: start: 20161010, end: 20161023
  25. PARACETAMOL [Concomitant]
     Active Substance: ACETAMINOPHEN
     Dosage: UNK
     Route: 065
     Dates: start: 20170925
  26. SORAFENIB [Concomitant]
     Active Substance: SORAFENIB
     Indication: MALIGNANT MELANOMA
     Dosage: 400 MG, 2X/DAY
     Route: 048
     Dates: start: 20171021
  27. PANTOZOL [Concomitant]
     Active Substance: PANTOPRAZOLE SODIUM
     Dosage: 40 MG, 1X/DAY
     Route: 048
     Dates: start: 20170515
  28. NIVOLUMAB [Concomitant]
     Active Substance: NIVOLUMAB
     Indication: MALIGNANT MELANOMA
     Dosage: 93 MG, EVERY 3 WEEKS
     Route: 042
     Dates: start: 20170421, end: 20170518
  29. DECORTIN H [Concomitant]
     Active Substance: PREDNISOLONE
     Dosage: 90 MG, 1X/DAY
     Route: 048
     Dates: start: 20170602, end: 20170613
  30. DECORTIN H [Concomitant]
     Active Substance: PREDNISOLONE
     Dosage: 80 MG, 1X/DAY
     Route: 048
     Dates: start: 20170707, end: 20170720
  31. DECORTIN H [Concomitant]
     Active Substance: PREDNISOLONE
     Dosage: 30 MG, 1X/DAY
     Route: 048
     Dates: start: 20170821, end: 20170827
  32. NOVALGIN (METAMIZOLE SODIUM) [Concomitant]
     Active Substance: METAMIZOLE SODIUM
     Indication: MALIGNANT MELANOMA
     Dosage: UNK
  33. PREDNISOLONE. [Concomitant]
     Active Substance: PREDNISOLONE
     Dosage: 10 MG, 1X/DAY
     Route: 048
     Dates: start: 20170925, end: 20170928
  34. SEVREDOL [Concomitant]
     Active Substance: MORPHINE
     Dosage: 10 MG, AS NEEDED
     Route: 048
     Dates: start: 20170519, end: 20170616
  35. PERENTEROL [Concomitant]
     Active Substance: SACCHAROMYCES CEREVISIAE
     Dosage: 1 DF, 3X/DAY
     Route: 048
     Dates: start: 20170515, end: 20170616
  36. BUDESONIDE. [Concomitant]
     Active Substance: BUDESONIDE
     Dosage: UNK
     Route: 065
     Dates: start: 20170530
  37. COBIMETINIB. [Concomitant]
     Active Substance: COBIMETINIB
     Indication: MALIGNANT MELANOMA
     Dosage: 60 MG, 1X/DAY
     Route: 048
     Dates: start: 20161010, end: 20161023

REACTIONS (24)
  - Pyrexia [Recovered/Resolved]
  - Peripheral swelling [Recovered/Resolved]
  - Blood lactate dehydrogenase increased [Recovered/Resolved]
  - Nausea [Recovered/Resolved]
  - Diarrhoea [Recovered/Resolved]
  - Gastritis [Recovered/Resolved]
  - Vomiting [Recovered/Resolved]
  - Nausea [Recovered/Resolved]
  - Swelling face [Recovered/Resolved]
  - Influenza like illness [Recovered/Resolved]
  - Diarrhoea [Unknown]
  - Fatigue [Recovered/Resolved]
  - Blood creatinine increased [Recovered/Resolved]
  - Pyrexia [Recovered/Resolved]
  - Nausea [Recovered/Resolved]
  - Erythema [Recovered/Resolved]
  - Body temperature increased [Recovered/Resolved]
  - Chromaturia [Unknown]
  - Constipation [Recovered/Resolved]
  - Lymphocyte count decreased [Recovered/Resolved]
  - Blood lactate dehydrogenase increased [Not Recovered/Not Resolved]
  - Haematochezia [Unknown]
  - Abdominal pain lower [Unknown]
  - Dysuria [Unknown]

NARRATIVE: CASE EVENT DATE: 20160908
